FAERS Safety Report 19097886 (Version 1)
Quarter: 2021Q2

REPORT INFORMATION
  Report Type: Report from Study
  Country: US (occurrence: US)
  Receive Date: 20210406
  Receipt Date: 20210406
  Transmission Date: 20210717
  Serious: Yes (Other)
  Sender: FDA-Public Use
  Company Number: US-VERTEX PHARMACEUTICALS-2021-002979

PATIENT
  Age: 48 Year
  Sex: Female

DRUGS (4)
  1. PREDNISONE. [Concomitant]
     Active Substance: PREDNISONE
  2. TRIKAFTA [Suspect]
     Active Substance: ELEXACAFTOR\IVACAFTOR\TEZACAFTOR
     Indication: CYSTIC FIBROSIS
     Dosage: (100 MG ELEXACAFTOR/ 50 MG TEZACAFTOR/ 75 MG IVACAFTOR); (150MG IVACAFTOR), BID
     Route: 048
     Dates: start: 20201021
  3. IMURAN [Concomitant]
     Active Substance: AZATHIOPRINE
  4. TRIKAFTA [Suspect]
     Active Substance: ELEXACAFTOR\IVACAFTOR\TEZACAFTOR
     Dosage: REDUCED; (ALTERNATING BETWEEN FULL AND HALF DOSE)AM
     Route: 048
     Dates: end: 202101

REACTIONS (4)
  - Dizziness [Unknown]
  - Headache [Unknown]
  - Loss of consciousness [Unknown]
  - Illness [Unknown]

NARRATIVE: CASE EVENT DATE: 202011
